FAERS Safety Report 18252357 (Version 2)
Quarter: 2021Q2

REPORT INFORMATION
  Report Type: Spontaneous
  Country: US (occurrence: US)
  Receive Date: 20200910
  Receipt Date: 20210503
  Transmission Date: 20210717
  Serious: No
  Sender: FDA-Public Use
  Company Number: US-FARMAPROD-202006-0868

PATIENT
  Age: 62 Year
  Sex: Male

DRUGS (24)
  1. DOCUSATE SODIUM. [Concomitant]
     Active Substance: DOCUSATE SODIUM
     Route: 048
  2. TIMOLOL MALEATE. [Concomitant]
     Active Substance: TIMOLOL MALEATE
  3. ASPIR [Concomitant]
     Active Substance: ASPIRIN
     Dosage: DELAY RELEASE TABLET
     Route: 048
  4. LANTISEPTIC [Concomitant]
  5. GABAPENTIN. [Concomitant]
     Active Substance: GABAPENTIN
     Route: 048
  6. ATORVASTATIN CALCIUM. [Concomitant]
     Active Substance: ATORVASTATIN CALCIUM
     Route: 048
  7. RANITIDINE HYDROCHLORIDE. [Concomitant]
     Active Substance: RANITIDINE HYDROCHLORIDE
     Route: 048
  8. PRED FORTE [Concomitant]
     Active Substance: PREDNISOLONE ACETATE
  9. LANTUS [Concomitant]
     Active Substance: INSULIN GLARGINE
     Dosage: 100 UNIT/ML
  10. ACICLOVIR [Concomitant]
     Active Substance: ACYCLOVIR
     Route: 048
  11. TOBRADEX [Concomitant]
     Active Substance: DEXAMETHASONE\TOBRAMYCIN
     Dosage: 0.3%?0.1%
  12. LISINOPRIL. [Concomitant]
     Active Substance: LISINOPRIL
     Route: 048
  13. SYSTANE (HYPROMELLOSE 2910 (4000 MPA.S)) [Concomitant]
     Active Substance: HYPROMELLOSE 2910 (4000 MPA.S)
     Dosage: 0.4%?0.3%
  14. OXERVATE [Suspect]
     Active Substance: CENEGERMIN-BKBJ
     Indication: HERPES OPHTHALMIC
     Route: 047
     Dates: start: 20200518
  15. OMEPRAZOLE?SODIUM BICARBONATE [Concomitant]
     Active Substance: OMEPRAZOLE\SODIUM BICARBONATE
  16. OXYCODONE?ACETAMINOPHEN [Concomitant]
     Active Substance: ACETAMINOPHEN\OXYCODONE HYDROCHLORIDE
     Dosage: 1/2 TABLET ONCE A WEEK
     Route: 048
  17. FLUTICASONE. [Concomitant]
     Active Substance: FLUTICASONE
  18. OXERVATE [Suspect]
     Active Substance: CENEGERMIN-BKBJ
     Indication: GLAUCOMA
  19. BRIMONIDINE TARTRATE. [Concomitant]
     Active Substance: BRIMONIDINE TARTRATE
  20. OXERVATE [Suspect]
     Active Substance: CENEGERMIN-BKBJ
     Indication: CORNEAL ABRASION
  21. ERYTHROMYCIN. [Concomitant]
     Active Substance: ERYTHROMYCIN
  22. PREDNISOLONE. [Concomitant]
     Active Substance: PREDNISOLONE
     Dosage: 15MG/5ML
  23. OFLOXACIN. [Concomitant]
     Active Substance: OFLOXACIN
  24. TRAMADOL HCL?ACETAMINOPHEN [Concomitant]
     Route: 048

REACTIONS (5)
  - Eye pain [Recovered/Resolved]
  - Foreign body sensation in eyes [Unknown]
  - Swelling of eyelid [Unknown]
  - Vision blurred [Unknown]
  - Intraocular pressure increased [Not Recovered/Not Resolved]

NARRATIVE: CASE EVENT DATE: 20200424
